FAERS Safety Report 20771734 (Version 1)
Quarter: 2022Q2

REPORT INFORMATION
  Report Type: Spontaneous
  Country: ES (occurrence: ES)
  Receive Date: 20220430
  Receipt Date: 20220430
  Transmission Date: 20220721
  Serious: Yes (Hospitalization, Other)
  Sender: FDA-Public Use
  Company Number: ES-AEMPS-1161594

PATIENT
  Age: 74 Year
  Sex: Female

DRUGS (5)
  1. NAPROXEN SODIUM [Suspect]
     Active Substance: NAPROXEN SODIUM
     Indication: Product used for unknown indication
     Dosage: UNK UNK, TWO TIMES A DAY (1 TABLET)
     Route: 048
     Dates: start: 20211029, end: 20211104
  2. EUTHYROX [Concomitant]
     Active Substance: LEVOTHYROXINE SODIUM
     Indication: Hypothyroidism
     Dosage: UNK UNK, ONCE A DAY (1 TABLET )
     Route: 048
     Dates: start: 201906
  3. VENLAFAXINE HYDROCHLORIDE [Concomitant]
     Active Substance: VENLAFAXINE HYDROCHLORIDE
     Indication: Product used for unknown indication
     Dosage: UNK UNK, ONCE A DAY (1 CAPSULE)
     Route: 048
     Dates: start: 202002
  4. PANTOPRAZOLE [Concomitant]
     Active Substance: PANTOPRAZOLE
     Indication: Product used for unknown indication
     Dosage: UNK UNK, ONCE A DAY (1 TABLET)
     Route: 048
     Dates: start: 202103
  5. CALCIUM CARBONATE [Concomitant]
     Active Substance: CALCIUM CARBONATE
     Indication: Product used for unknown indication
     Dosage: UNK UNK, ONCE A DAY (1 TABLET)
     Route: 048
     Dates: start: 201908

REACTIONS (2)
  - Gastric ulcer [Unknown]
  - Erosive duodenitis [Unknown]

NARRATIVE: CASE EVENT DATE: 20211103
